FAERS Safety Report 13757861 (Version 1)
Quarter: 2017Q3

REPORT INFORMATION
  Report Type: Spontaneous
  Country: US (occurrence: US)
  Receive Date: 20170717
  Receipt Date: 20170717
  Transmission Date: 20171127
  Serious: No
  Sender: FDA-Public Use
  Company Number: US-SHIRE-US201714738

PATIENT

DRUGS (1)
  1. XIIDRA [Suspect]
     Active Substance: LIFITEGRAST
     Indication: DRY EYE
     Dosage: 1 DROP EVERY 12 HOURS
     Route: 047
     Dates: start: 20170706

REACTIONS (2)
  - Vision blurred [Recovered/Resolved]
  - Instillation site reaction [Recovered/Resolved]
